FAERS Safety Report 5304324-5 (Version None)
Quarter: 2007Q2

REPORT INFORMATION
  Report Type: 
  Country: None (occurrence: None)
  Receive Date: 20070423
  Receipt Date: 20070410
  Transmission Date: 20071010
  Serious: Yes (Other)
  Sender: FDA-Public Use
  Company Number: PHEH2007US05012

PATIENT
  Age: 61 Year
  Sex: Female

DRUGS (4)
  1. NORVASC [Suspect]
     Dosage: UNK, UNK
  2. ASPIRIN [Suspect]
     Dosage: UNK, UNK
  3. VYTORIN [Suspect]
     Dosage: UNK, UNK
     Dates: end: 20070409
  4. DIOVAN [Suspect]
     Indication: HYPERTENSION
     Dosage: UNK, QD
     Dates: start: 20070201

REACTIONS (3)
  - RASH PAPULAR [None]
  - RASH PRURITIC [None]
  - VASCULITIS [None]
